FAERS Safety Report 6785792-9 (Version None)
Quarter: 2010Q2

REPORT INFORMATION
  Report Type: 
  Country: None (occurrence: None)
  Receive Date: 20100622
  Receipt Date: 20100622
  Transmission Date: 20101027
  Serious: Yes (Hospitalization)
  Sender: FDA-Public Use
  Company Number: None

PATIENT
  Age: 53 Year
  Sex: Male
  Weight: 87.5 kg

DRUGS (14)
  1. COUMADIN [Suspect]
     Indication: DEEP VEIN THROMBOSIS
     Dosage: DAILY PO SINCE RECENT TKR DVT
     Route: 048
  2. AMIODARONE HCL [Suspect]
     Indication: ATRIAL FIBRILLATION
     Dosage: 200 BID PO
     Route: 048
     Dates: start: 20100331
  3. MYCOPHENOLATE MOFETIL [Concomitant]
  4. PREDNISONE [Concomitant]
  5. PREVACID [Concomitant]
  6. VYTORIN [Concomitant]
  7. ATENOLOL [Concomitant]
  8. LASIX [Concomitant]
  9. CALCITRIOL [Concomitant]
  10. ULORIC [Concomitant]
  11. COLACE [Concomitant]
  12. ERGOCALCIFEROL [Concomitant]
  13. AMIODARONE HCL [Concomitant]
  14. OXYCODONE HCL [Concomitant]

REACTIONS (4)
  - HAEMATURIA [None]
  - INTERNATIONAL NORMALISED RATIO INCREASED [None]
  - PULMONARY EMBOLISM [None]
  - URINE OUTPUT DECREASED [None]
